FAERS Safety Report 4701355-0 (Version None)
Quarter: 2005Q2

REPORT INFORMATION
  Report Type: 
  Country: None (occurrence: None)
  Receive Date: 20050627
  Receipt Date: 20050616
  Transmission Date: 20051028
  Serious: Yes (Other)
  Sender: FDA-Public Use
  Company Number: 2005VX000370

PATIENT
  Age: 67 Year
  Sex: Female

DRUGS (8)
  1. TASMAR [Suspect]
     Indication: PARKINSON'S DISEASE
     Dosage: 100 MG; 3 TIMES A DAY; ORAL
     Route: 048
     Dates: start: 20030925, end: 20050512
  2. SINEMET [Concomitant]
  3. MADOPAR QUICK [Concomitant]
  4. IBUPROFEN [Concomitant]
  5. ACETAMINOPHEN [Concomitant]
  6. FOROSEMID [Concomitant]
  7. POTASSIUM CHLORIDE [Concomitant]
  8. ZOLPIDEM [Concomitant]

REACTIONS (2)
  - BLOOD ALKALINE PHOSPHATASE INCREASED [None]
  - BLOOD LACTATE DEHYDROGENASE INCREASED [None]
